FAERS Safety Report 9671981 (Version 1)
Quarter: 2013Q4

REPORT INFORMATION
  Report Type: Spontaneous
  Country: US (occurrence: None)
  Receive Date: 20131105
  Receipt Date: 20131105
  Transmission Date: 20140711
  Serious: Yes (Life-Threatening, Hospitalization)
  Sender: FDA-Public Use
  Company Number: None

PATIENT
  Age: 71 None
  Sex: Female

DRUGS (18)
  1. ZOFRAN [Suspect]
     Indication: VOMITING
  2. REGLAN [Suspect]
  3. PHENERGAN [Suspect]
  4. CLONIDINE [Concomitant]
  5. CLONAZEPAM [Concomitant]
  6. COREG [Concomitant]
  7. DEPAKOTE [Concomitant]
  8. DIOVAN [Concomitant]
  9. SYNTHROID [Concomitant]
  10. LINZESS [Concomitant]
  11. CARAFATE [Concomitant]
  12. VESICARE [Concomitant]
  13. RESTASIS [Concomitant]
  14. MIDRIN [Concomitant]
  15. PERCOCET [Concomitant]
  16. MULTIVITAMIN + MINERAL;MOVE FREE [Concomitant]
  17. ASPIRIN [Concomitant]
  18. ALEVE [Concomitant]

REACTIONS (3)
  - No therapeutic response [None]
  - Grand mal convulsion [None]
  - Torsade de pointes [None]
